FAERS Safety Report 7122710-8 (Version None)
Quarter: 2010Q4

REPORT INFORMATION
  Report Type: 
  Country: None (occurrence: None)
  Receive Date: 20101124
  Receipt Date: 20101116
  Transmission Date: 20110411
  Serious: No
  Sender: FDA-Public Use
  Company Number: US-PFIZER INC-2010136244

PATIENT
  Sex: Male
  Weight: 102 kg

DRUGS (5)
  1. VIAGRA [Suspect]
     Indication: ERECTILE DYSFUNCTION
     Dosage: 100 MG, UNK
     Dates: start: 20101020
  2. VIAGRA [Suspect]
     Dosage: UNK
  3. LOTREL [Concomitant]
     Indication: HYPERTENSION
     Dosage: UNK
  4. METFORMIN [Concomitant]
     Indication: BLOOD GLUCOSE INCREASED
     Dosage: UNK
  5. HYDROCHLOROTHIAZIDE [Concomitant]
     Indication: HYPERTENSION
     Dosage: UNK

REACTIONS (1)
  - DRUG INEFFECTIVE [None]
